FAERS Safety Report 8284971-1 (Version None)
Quarter: 2012Q2

REPORT INFORMATION
  Report Type: 
  Country: None (occurrence: None)
  Receive Date: 20120413
  Receipt Date: 20110804
  Transmission Date: 20120825
  Serious: Yes (Hospitalization, Other)
  Sender: FDA-Public Use
  Company Number: US-ASTRAZENECA-2011SE46942

PATIENT
  Sex: Female

DRUGS (3)
  1. LIPITOR [Concomitant]
  2. WELCHOL [Concomitant]
     Indication: BLOOD CHOLESTEROL ABNORMAL
  3. NEXIUM [Suspect]
     Route: 048

REACTIONS (1)
  - HIP FRACTURE [None]
